FAERS Safety Report 17663087 (Version 2)
Quarter: 2020Q2

REPORT INFORMATION
  Report Type: Spontaneous
  Country: US (occurrence: US)
  Receive Date: 20200413
  Receipt Date: 20200414
  Transmission Date: 20200713
  Serious: Yes (Other)
  Sender: FDA-Public Use
  Company Number: US-PURDUE-USA-2020-0151648

PATIENT
  Sex: Male

DRUGS (1)
  1. OXYCONTIN [Suspect]
     Active Substance: OXYCODONE HYDROCHLORIDE
     Indication: PRODUCT USED FOR UNKNOWN INDICATION
     Dosage: 20 MG, UNK
     Route: 048
     Dates: start: 2001, end: 2006

REACTIONS (4)
  - Lung neoplasm malignant [Unknown]
  - Surgery [Unknown]
  - Leg amputation [Recovered/Resolved]
  - Drug dependence [None]

NARRATIVE: CASE EVENT DATE: 2001
